FAERS Safety Report 10962852 (Version 2)
Quarter: 2015Q3

REPORT INFORMATION
  Report Type: Spontaneous
  Country: PT (occurrence: PT)
  Receive Date: 20150327
  Receipt Date: 20150717
  Transmission Date: 20151125
  Serious: Yes (Disabling, Other)
  Sender: FDA-Public Use
  Company Number: PT-BRISTOL-MYERS SQUIBB COMPANY-BMS-2015-015782

PATIENT
  Age: 37 Year
  Sex: Female

DRUGS (2)
  1. TENOFOVIR [Concomitant]
     Active Substance: TENOFOVIR
     Indication: HIV INFECTION
     Route: 065
  2. STOCRIN [Suspect]
     Active Substance: EFAVIRENZ
     Indication: HIV INFECTION
     Route: 065

REACTIONS (2)
  - Ocular toxicity [Not Recovered/Not Resolved]
  - Blindness [Not Recovered/Not Resolved]
